FAERS Safety Report 23276352 (Version 2)
Quarter: 2024Q1

REPORT INFORMATION
  Report Type: Spontaneous
  Country: NL (occurrence: NL)
  Receive Date: 20231208
  Receipt Date: 20240226
  Transmission Date: 20240410
  Serious: Yes (Congenital Anomaly, Other)
  Sender: FDA-Public Use
  Company Number: NL-AMGEN-NLDSP2023213462

PATIENT

DRUGS (2)
  1. ADALIMUMAB [Suspect]
     Active Substance: ADALIMUMAB\ISOPROPYL ALCOHOL
     Indication: Exposure during pregnancy
     Dosage: 40 MILLIGRAM, QWK (40 MG/WEEK SC)
     Route: 064
     Dates: start: 20230712
  2. THIOGUANINE ANHYDROUS [Suspect]
     Active Substance: THIOGUANINE ANHYDROUS
     Indication: Exposure during pregnancy
     Dosage: 10 MILLIGRAM, QD (1 DD 10 MG)
     Route: 064
     Dates: start: 20230307

REACTIONS (6)
  - Gastrointestinal disorder congenital [Recovered/Resolved]
  - Aberrant aortic arch [Recovered/Resolved]
  - Congenital cerebellar agenesis [Recovered/Resolved]
  - Congenital cystic kidney disease [Recovered/Resolved]
  - Foetal growth restriction [Recovered/Resolved]
  - Foetal exposure during pregnancy [Recovered/Resolved]
